FAERS Safety Report 4448246-0 (Version None)
Quarter: 2004Q3

REPORT INFORMATION
  Report Type: 
  Country: None (occurrence: None)
  Receive Date: 20040910
  Receipt Date: 20040819
  Transmission Date: 20050211
  Serious: Yes (Other)
  Sender: FDA-Public Use
  Company Number: 601437

PATIENT
  Age: 1 Year
  Sex: Male

DRUGS (1)
  1. RECOMBINATE [Suspect]
     Indication: FACTOR VIII DEFICIENCY
     Dosage: 1000 IU; TIW; INTRAVENOUS
     Route: 042
     Dates: start: 20040201

REACTIONS (4)
  - FACTOR VIII INHIBITION [None]
  - FALL [None]
  - HAEMATOMA [None]
  - LABORATORY TEST ABNORMAL [None]
